FAERS Safety Report 6849466-8 (Version None)
Quarter: 2010Q3

REPORT INFORMATION
  Report Type: 
  Country: None (occurrence: None)
  Receive Date: 20100716
  Receipt Date: 20070929
  Transmission Date: 20110219
  Serious: No
  Sender: FDA-Public Use
  Company Number: US-PFIZER INC-2007082896

PATIENT
  Sex: Female

DRUGS (6)
  1. CHANTIX [Suspect]
     Indication: SMOKING CESSATION THERAPY
     Route: 048
     Dates: start: 20070926
  2. AMLODIPINE [Concomitant]
  3. PREMARIN [Concomitant]
  4. PROVERA [Concomitant]
  5. VITAMINS [Concomitant]
  6. CARDIOVASCULAR SYSTEM DRUGS [Concomitant]

REACTIONS (1)
  - DYSPEPSIA [None]
